FAERS Safety Report 5945909-2 (Version None)
Quarter: 2008Q4

REPORT INFORMATION
  Report Type: 
  Country: None (occurrence: None)
  Receive Date: 20081106
  Receipt Date: 20081031
  Transmission Date: 20090506
  Serious: Yes (Death, Life-Threatening, Hospitalization)
  Sender: FDA-Public Use
  Company Number: 2008-186185-NL

PATIENT
  Age: 43 Year
  Sex: Male

DRUGS (9)
  1. MIRTAZAPINE [Suspect]
     Dosage: 15 MG/30 MG/45 MG
     Dates: start: 20050202, end: 20050203
  2. MIRTAZAPINE [Suspect]
     Dosage: 15 MG/30 MG/45 MG
     Dates: start: 20050204, end: 20050207
  3. MIRTAZAPINE [Suspect]
     Dosage: 15 MG/30 MG/45 MG
     Dates: start: 20050208, end: 20050406
  4. ZOPICLONE [Suspect]
     Dosage: 7.5 MG
     Dates: start: 20050211, end: 20050406
  5. ZIPRASIDONE HCL [Suspect]
     Dosage: 20 MG/40 MG
     Dates: start: 20050312, end: 20050406
  6. ZIPRASIDONE HCL [Suspect]
     Dosage: 20 MG/40 MG
     Dates: start: 20050305
  7. CEFUROXIME SODIUM [Concomitant]
  8. PANTOPRAZOLE SODIUM [Concomitant]
  9. LORAZEPAM [Concomitant]

REACTIONS (1)
  - COMPLETED SUICIDE [None]
